FAERS Safety Report 4753254-6 (Version None)
Quarter: 2005Q3

REPORT INFORMATION
  Report Type: 
  Country: None (occurrence: None)
  Receive Date: 20050824
  Receipt Date: 20050815
  Transmission Date: 20060218
  Serious: Yes (Death)
  Sender: FDA-Public Use
  Company Number: 200511615BWH

PATIENT

DRUGS (2)
  1. TRASYLOL [Suspect]
     Indication: CORONARY ARTERY SURGERY
     Dates: start: 20020101
  2. PROTAMINE [Concomitant]

REACTIONS (2)
  - CARDIAC VENTRICULAR DISORDER [None]
  - CARDIOVASCULAR DISORDER [None]
